FAERS Safety Report 22187482 (Version 1)
Quarter: 2023Q2

REPORT INFORMATION
  Report Type: Spontaneous
  Country: ES (occurrence: ES)
  Receive Date: 20230407
  Receipt Date: 20230407
  Transmission Date: 20230722
  Serious: Yes (Other)
  Sender: FDA-Public Use
  Company Number: ES-WOODWARD-2023-ES-000039

PATIENT
  Age: 89 Year
  Sex: Male

DRUGS (1)
  1. DUTASTERIDE\TAMSULOSIN HYDROCHLORIDE [Suspect]
     Active Substance: DUTASTERIDE\TAMSULOSIN HYDROCHLORIDE
     Indication: Product used for unknown indication
     Dosage: UNK, 0.5 MG/0.4 MG CAPSULE
     Route: 065

REACTIONS (3)
  - Dementia [Unknown]
  - Product use complaint [Unknown]
  - Product dose omission issue [Unknown]
